FAERS Safety Report 11030955 (Version 1)
Quarter: 2015Q2

REPORT INFORMATION
  Report Type: Spontaneous
  Country: FR (occurrence: None)
  Receive Date: 20150413
  Receipt Date: 20150413
  Transmission Date: 20150821
  Serious: Yes (Hospitalization)
  Sender: FDA-Public Use
  Company Number: 2815042

PATIENT
  Age: 59 Year
  Sex: Female

DRUGS (4)
  1. CARBOPLATIN. [Suspect]
     Active Substance: CARBOPLATIN
     Indication: CHEMOTHERAPY
     Dosage: AUC 5 (CYCLICAL) INTRAVENOUS
     Route: 042
     Dates: start: 20131206
  2. PACLITAXEL KABI [Suspect]
     Active Substance: PACLITAXEL
     Indication: CHEMOTHERAPY
     Dosage: 175 MG/M2 MILLIGRAM(S)/SQ. METER (CYCLICAL) INTRAVENOUS
     Route: 042
     Dates: start: 20131206, end: 20131206
  3. DOCETAXEL. [Suspect]
     Active Substance: DOCETAXEL
     Indication: CHEMOTHERAPY
     Dosage: 75 MG/M2 MILLIGRAM(S)/SQ. METER (CYCLICAL) INTRAVENOUS
     Route: 042
     Dates: start: 20140109, end: 20140613
  4. AVASTIN [Suspect]
     Active Substance: BEVACIZUMAB
     Indication: CHEMOTHERAPY
     Dosage: 15 MG/KG MILLIGRAM(S)/KILOGRAM (CYCLICAL) INTRAVENOUS
     Route: 042
     Dates: start: 20141006, end: 20141208

REACTIONS (5)
  - Acute myeloid leukaemia [None]
  - Pancytopenia [None]
  - Drug hypersensitivity [None]
  - Myelodysplastic syndrome [None]
  - Haematotoxicity [None]

NARRATIVE: CASE EVENT DATE: 20131206
